FAERS Safety Report 25761357 (Version 6)
Quarter: 2025Q4

REPORT INFORMATION
  Report Type: Report from Study
  Country: CA (occurrence: CA)
  Receive Date: 20250904
  Receipt Date: 20251222
  Transmission Date: 20260117
  Serious: Yes (Other)
  Sender: PFIZER
  Company Number: CA-PFIZER INC-202500173648

PATIENT
  Age: 32 Year
  Sex: Male
  Weight: 100 kg

DRUGS (5)
  1. IXIFI [Suspect]
     Active Substance: INFLIXIMAB-QBTX
     Indication: Crohn^s disease
     Dosage: 600 MG, EVERY 8 WEEKS
     Route: 042
     Dates: start: 20250722, end: 20250722
  2. IXIFI [Suspect]
     Active Substance: INFLIXIMAB-QBTX
     Dosage: 600 MG, 8 WEEKS AND 2 DAYS(EVERY 6 WEEKS)
     Route: 042
     Dates: start: 20250918
  3. IXIFI [Suspect]
     Active Substance: INFLIXIMAB-QBTX
     Dosage: 600 MG, EVERY 6 WEEKS
     Route: 042
     Dates: start: 20251030
  4. IXIFI [Suspect]
     Active Substance: INFLIXIMAB-QBTX
     Dosage: 600 MG, AFTER 6 WEEKS (EVERY 6 WEEKS)
     Route: 042
     Dates: start: 20251216
  5. VENLAFAXINE [Concomitant]
     Active Substance: VENLAFAXINE HYDROCHLORIDE
     Dosage: 1 DF

REACTIONS (9)
  - Ileal stenosis [Unknown]
  - Craniocerebral injury [Recovering/Resolving]
  - Intestinal stenosis [Unknown]
  - Therapeutic response shortened [Unknown]
  - Weight decreased [Unknown]
  - Road traffic accident [Unknown]
  - Nervous system disorder [Unknown]
  - Condition aggravated [Not Recovered/Not Resolved]
  - Off label use [Unknown]

NARRATIVE: CASE EVENT DATE: 20250101
